FAERS Safety Report 21060029 (Version 1)
Quarter: 2022Q3

REPORT INFORMATION
  Report Type: Spontaneous
  Country: US (occurrence: US)
  Receive Date: 20220708
  Receipt Date: 20220708
  Transmission Date: 20221027
  Serious: No
  Sender: FDA-Public Use
  Company Number: US-SA-SAC20220630000151

PATIENT
  Sex: Male
  Weight: 90.71 kg

DRUGS (2)
  1. DUPIXENT [Suspect]
     Active Substance: DUPILUMAB
     Indication: Chronic rhinosinusitis with nasal polyps
     Dosage: 300MG, QOW
     Route: 058
     Dates: start: 202110
  2. CIALIS [Concomitant]
     Active Substance: TADALAFIL

REACTIONS (1)
  - Injection site rash [Not Recovered/Not Resolved]
